FAERS Safety Report 12370938 (Version 2)
Quarter: 2016Q4

REPORT INFORMATION
  Report Type: Spontaneous
  Country: GB (occurrence: GB)
  Receive Date: 20160516
  Receipt Date: 20161013
  Transmission Date: 20170207
  Serious: Yes (Death, Other)
  Sender: FDA-Public Use
  Company Number: GB-009507513-1605GBR005891

PATIENT
  Age: 73 Year
  Sex: Female
  Weight: 62.5 kg

DRUGS (3)
  1. HUMAN INSULATARD [Concomitant]
     Active Substance: INSULIN HUMAN
     Dosage: UNK
  2. SITAGLIPTIN PHOSPHATE [Suspect]
     Active Substance: SITAGLIPTIN PHOSPHATE
     Indication: DIABETES MELLITUS
     Dosage: 100 MG, QD
     Route: 048
     Dates: start: 20100609, end: 20160421
  3. OMEPRAZOLE. [Concomitant]
     Active Substance: OMEPRAZOLE
     Dosage: UNK

REACTIONS (1)
  - Pancreatic carcinoma metastatic [Fatal]

NARRATIVE: CASE EVENT DATE: 20160421
